FAERS Safety Report 8298926-4 (Version None)
Quarter: 2012Q2

REPORT INFORMATION
  Report Type: 
  Country: None (occurrence: None)
  Receive Date: 20120419
  Receipt Date: 20120416
  Transmission Date: 20120825
  Serious: Yes (Other)
  Sender: FDA-Public Use
  Company Number: US-PFIZER INC-2012063652

PATIENT
  Sex: Male
  Weight: 95.238 kg

DRUGS (2)
  1. METFORMIN [Concomitant]
     Indication: DIABETES MELLITUS
     Dosage: UNK
  2. LIPITOR [Suspect]
     Indication: STENT PLACEMENT
     Dosage: 10 MG, DAILY

REACTIONS (1)
  - PARKINSON'S DISEASE [None]
